FAERS Safety Report 4810974-2 (Version None)
Quarter: 2005Q4

REPORT INFORMATION
  Report Type: 
  Country: None (occurrence: None)
  Receive Date: 20051027
  Receipt Date: 20051021
  Transmission Date: 20060501
  Serious: Yes (Other)
  Sender: FDA-Public Use
  Company Number: US-NOVOPROD-247957

PATIENT
  Age: 12 Year
  Sex: Female
  Weight: 33 kg

DRUGS (2)
  1. NORDITROPIN CARTRIDGES [Suspect]
     Indication: TURNER'S SYNDROME
     Dosage: 2 MG, QD
     Route: 058
     Dates: start: 20040501
  2. OXANDRIN [Suspect]
     Indication: TURNER'S SYNDROME
     Dosage: UNK, QD
     Dates: start: 20050101, end: 20050913

REACTIONS (4)
  - ALANINE AMINOTRANSFERASE INCREASED [None]
  - ASPARTATE AMINOTRANSFERASE INCREASED [None]
  - BLOOD ALKALINE PHOSPHATASE INCREASED [None]
  - HEPATIC ENZYME INCREASED [None]
